FAERS Safety Report 10008742 (Version 1)
Quarter: 2014Q1

REPORT INFORMATION
  Report Type: Spontaneous
  Country: US (occurrence: US)
  Receive Date: 20140312
  Receipt Date: 20140312
  Transmission Date: 20141002
  Serious: No
  Sender: FDA-Public Use
  Company Number: US-INCYTE CORPORATION-2012IN000767

PATIENT
  Age: 71 Year
  Sex: Male

DRUGS (9)
  1. JAKAFI [Suspect]
     Indication: MYELOFIBROSIS
     Dosage: UNK
     Dates: start: 20120103
  2. DEXILANT [Concomitant]
  3. ASPIRIN [Concomitant]
     Dosage: 81 MG, UNK
     Route: 048
  4. XANAX [Concomitant]
  5. ZETIA [Concomitant]
  6. MICARDIS [Concomitant]
  7. TYLENOL [Concomitant]
  8. VITAMIN D [Concomitant]
     Indication: SUPPLEMENTATION THERAPY
  9. FISH OIL [Concomitant]

REACTIONS (3)
  - Contusion [Unknown]
  - Respiratory tract infection [Unknown]
  - Platelet count decreased [Unknown]
